FAERS Safety Report 4632278-3 (Version None)
Quarter: 2005Q2

REPORT INFORMATION
  Report Type: 
  Country: None (occurrence: None)
  Receive Date: 20050411
  Receipt Date: 20050330
  Transmission Date: 20051028
  Serious: Yes (Death)
  Sender: FDA-Public Use
  Company Number: FR-ROCHE-400280

PATIENT
  Age: 51 Year
  Sex: Male

DRUGS (4)
  1. ROCEPHIN [Suspect]
     Indication: NOCARDIOSIS
     Route: 042
  2. PROGRAF [Suspect]
     Route: 048
     Dates: start: 20040520, end: 20041206
  3. CORTANCYL [Suspect]
     Route: 048
  4. CORTANCYL [Suspect]
     Route: 048

REACTIONS (33)
  - ACUTE PULMONARY OEDEMA [None]
  - ANAEMIA [None]
  - AORTIC VALVE DISEASE [None]
  - ASTHENIA [None]
  - BONE MARROW DISORDER [None]
  - BRONCHOPULMONARY ASPERGILLOSIS [None]
  - CANDIDA SEPSIS [None]
  - CARDIAC FAILURE [None]
  - CARDIOMYOPATHY [None]
  - CEREBRAL DISORDER [None]
  - COMPLICATIONS OF TRANSPLANT SURGERY [None]
  - CONGESTIVE CARDIOMYOPATHY [None]
  - CONVERSION DISORDER [None]
  - CYTOMEGALOVIRUS INFECTION [None]
  - DEPRESSED LEVEL OF CONSCIOUSNESS [None]
  - DRUG TOXICITY [None]
  - EFFUSION [None]
  - GRAFT VERSUS HOST DISEASE [None]
  - INFECTION [None]
  - LUNG DISORDER [None]
  - MALNUTRITION [None]
  - MITRAL VALVE DISEASE [None]
  - MITRAL VALVE INCOMPETENCE [None]
  - MYOCARDITIS [None]
  - NOSOCOMIAL INFECTION [None]
  - OVERDOSE [None]
  - PERICARDIAL EFFUSION [None]
  - PLEURAL EFFUSION [None]
  - RENAL FAILURE [None]
  - SEPTIC SHOCK [None]
  - STATUS EPILEPTICUS [None]
  - THROMBOCYTOPENIA [None]
  - TRANSFUSION-RELATED ACUTE LUNG INJURY [None]
